FAERS Safety Report 9098475 (Version 2)
Quarter: 2013Q2

REPORT INFORMATION
  Report Type: Report from Study
  Country: US (occurrence: JP)
  Receive Date: 20130213
  Receipt Date: 20130426
  Transmission Date: 20140414
  Serious: Yes (Hospitalization)
  Sender: FDA-Public Use
  Company Number: PHHY2013JP013028

PATIENT
  Age: 88 Year
  Sex: Female

DRUGS (11)
  1. EXELON [Suspect]
     Indication: DEMENTIA ALZHEIMER^S TYPE
     Dosage: 4.5 MG, DAILY
     Route: 062
     Dates: start: 20120614, end: 20120711
  2. EXELON [Suspect]
     Dosage: 9 MG, DAILY
     Route: 062
     Dates: start: 20120712, end: 20120722
  3. EXELON [Suspect]
     Dosage: 9 MG, DAILY
     Route: 062
     Dates: start: 20120822, end: 20120910
  4. EXELON [Suspect]
     Dosage: 13.5 MG, DAILY
     Route: 062
     Dates: start: 20120911, end: 20121010
  5. EXELON [Suspect]
     Dosage: 18 MG,DAILY
     Route: 062
     Dates: start: 20121011
  6. REMINYL [Concomitant]
     Indication: DEMENTIA ALZHEIMER^S TYPE
     Dosage: 8 MG, UNK
     Route: 048
     Dates: end: 20120613
  7. GRIMAC [Concomitant]
     Indication: GASTRITIS
     Dosage: 1.5 G, UNK
     Route: 048
  8. BERIZYM [Concomitant]
     Indication: GASTRITIS
     Dosage: 0.99 G, UNK
     Route: 048
  9. PROTECADIN [Concomitant]
     Indication: GASTRITIS
     Dosage: 10 MG, UNK
     Route: 048
  10. LIPOVAS//SIMVASTATIN [Concomitant]
     Indication: HYPERLIPIDAEMIA
     Dosage: 5 MG, UNK
     Route: 048
  11. SILECE [Concomitant]
     Indication: INSOMNIA
     Dosage: 2 MG, UNK
     Route: 048

REACTIONS (2)
  - Mechanical ileus [Recovered/Resolved]
  - Gastrointestinal necrosis [Recovered/Resolved]
